FAERS Safety Report 5229651-1 (Version None)
Quarter: 2007Q1

REPORT INFORMATION
  Report Type: 
  Country: None (occurrence: None)
  Receive Date: 20070206
  Receipt Date: 20070125
  Transmission Date: 20070707
  Serious: Yes (Hospitalization)
  Sender: FDA-Public Use
  Company Number: PHBS2007AR01809

PATIENT
  Age: 77 Year
  Sex: Male

DRUGS (1)
  1. DIOVAN D [Suspect]
     Indication: HYPERTENSION
     Dosage: VALS 160 + HCT 12.5 MG/DAY
     Route: 048
     Dates: start: 20030101

REACTIONS (2)
  - CARDIAC PACEMAKER INSERTION [None]
  - TACHYCARDIA [None]
